FAERS Safety Report 15629270 (Version 2)
Quarter: 2018Q4

REPORT INFORMATION
  Report Type: Spontaneous
  Country: US (occurrence: US)
  Receive Date: 20181116
  Receipt Date: 20181231
  Transmission Date: 20190205
  Serious: No
  Sender: FDA-Public Use
  Company Number: US-VIFOR (INTERNATIONAL) INC.-VIT-2018-10870

PATIENT
  Sex: Male

DRUGS (19)
  1. METFORMIN HCL [Concomitant]
     Active Substance: METFORMIN HYDROCHLORIDE
  2. ATORVASTATIN CALCIUM. [Concomitant]
     Active Substance: ATORVASTATIN CALCIUM
  3. CENTRUM SILVER [Concomitant]
     Active Substance: MINERALS\VITAMINS
  4. VELTASSA [Suspect]
     Active Substance: PATIROMER
     Indication: HYPERKALAEMIA
  5. ATENOLOL. [Concomitant]
     Active Substance: ATENOLOL
  6. VELTASSA [Suspect]
     Active Substance: PATIROMER
     Indication: PARKINSON^S DISEASE
     Route: 048
     Dates: start: 20181018, end: 2018
  7. FLONASE [Concomitant]
     Active Substance: FLUTICASONE PROPIONATE
  8. FUROSEMIDE. [Concomitant]
     Active Substance: FUROSEMIDE
  9. AMLODIPINE BESYLATE. [Concomitant]
     Active Substance: AMLODIPINE BESYLATE
  10. VITAMIN B COMPLEX [Concomitant]
     Active Substance: CYANOCOBALAMIN\DEXPANTHENOL\NIACINAMIDE\PYRIDOXINE HYDROCHLORIDE\RIBOFLAVIN 5^-PHOSPHATE SODIUM\THIAMINE HYDROCHLORIDE\VITAMIN B COMPLEX
  11. CINNAMON. [Concomitant]
     Active Substance: CINNAMON
  12. TRAMADOL HCL [Concomitant]
     Active Substance: TRAMADOL HYDROCHLORIDE
  13. ASPIRIN. [Concomitant]
     Active Substance: ASPIRIN
  14. FOLIC ACID. [Concomitant]
     Active Substance: FOLIC ACID
  15. LISINOPRIL. [Concomitant]
     Active Substance: LISINOPRIL
  16. FINASTERIDE. [Concomitant]
     Active Substance: FINASTERIDE
  17. FLOMAX [Concomitant]
     Active Substance: TAMSULOSIN HYDROCHLORIDE
  18. ZOLOFT [Concomitant]
     Active Substance: SERTRALINE HYDROCHLORIDE
  19. HYDRALAZINE HCL [Concomitant]
     Active Substance: HYDRALAZINE HYDROCHLORIDE

REACTIONS (2)
  - Adverse drug reaction [Unknown]
  - Blood magnesium increased [Unknown]

NARRATIVE: CASE EVENT DATE: 2018
